FAERS Safety Report 8566656-7 (Version None)
Quarter: 2012Q3

REPORT INFORMATION
  Report Type: 
  Country: None (occurrence: None)
  Receive Date: 20120803
  Receipt Date: 20120719
  Transmission Date: 20120928
  Serious: No
  Sender: FDA-Public Use
  Company Number: US-ASTRAZENECA-2012SE50912

PATIENT
  Age: 64 Year
  Sex: Male
  Weight: 79.8 kg

DRUGS (2)
  1. SYMBICORT [Suspect]
     Indication: COUGH
     Dosage: UNKNOWN FREQUENCY
     Route: 055
  2. ZITHROMAX [Concomitant]

REACTIONS (1)
  - RESPIRATORY DISORDER [None]
